FAERS Safety Report 16791039 (Version 1)
Quarter: 2019Q3

REPORT INFORMATION
  Report Type: Spontaneous
  Country: US (occurrence: US)
  Receive Date: 20190719
  Receipt Date: 20190719
  Transmission Date: 20191005
  Serious: Yes (Hospitalization)
  Sender: FDA-Public Use
  Company Number: None

PATIENT
  Age: 9 Year
  Sex: Female

DRUGS (6)
  1. HYDROXYUREA 500MG CAP [Suspect]
     Active Substance: HYDROXYUREA
     Route: 065
     Dates: start: 20171228
  2. BACTRIM DS TAB [Concomitant]
  3. ALBUTEROL NEB [Concomitant]
     Active Substance: ALBUTEROL
  4. AZITHROMYCIN TAB [Concomitant]
  5. BETHKIS NEB [Concomitant]
  6. CREON CAP [Concomitant]

REACTIONS (1)
  - Hospitalisation [None]

NARRATIVE: CASE EVENT DATE: 201906
